FAERS Safety Report 18755085 (Version 10)
Quarter: 2022Q4

REPORT INFORMATION
  Report Type: Report from Study
  Country: JP (occurrence: JP)
  Receive Date: 20210119
  Receipt Date: 20221214
  Transmission Date: 20230113
  Serious: Yes (Hospitalization, Other)
  Sender: FDA-Public Use
  Company Number: NVSJ2020JP014658

PATIENT
  Age: 26 Year
  Sex: Female
  Weight: 59.6 kg

DRUGS (41)
  1. ILARIS [Suspect]
     Active Substance: CANAKINUMAB
     Indication: Still^s disease
     Dosage: 240 MG, UNK
     Route: 058
     Dates: start: 20180816
  2. ILARIS [Suspect]
     Active Substance: CANAKINUMAB
     Dosage: 240 MG
     Route: 058
     Dates: start: 20180911
  3. ILARIS [Suspect]
     Active Substance: CANAKINUMAB
     Dosage: 240 MG
     Route: 058
     Dates: start: 20181009
  4. ILARIS [Suspect]
     Active Substance: CANAKINUMAB
     Dosage: 240 MG
     Route: 058
     Dates: start: 20181113
  5. ILARIS [Suspect]
     Active Substance: CANAKINUMAB
     Dosage: 240 MG
     Route: 058
     Dates: start: 20181211
  6. ILARIS [Suspect]
     Active Substance: CANAKINUMAB
     Dosage: 240 MG
     Route: 058
     Dates: start: 20190108
  7. ILARIS [Suspect]
     Active Substance: CANAKINUMAB
     Dosage: 240 MG
     Route: 058
     Dates: start: 20190204
  8. ILARIS [Suspect]
     Active Substance: CANAKINUMAB
     Dosage: 232.5 MG
     Route: 058
     Dates: start: 20190304
  9. ILARIS [Suspect]
     Active Substance: CANAKINUMAB
     Dosage: 240 MG
     Route: 058
     Dates: start: 20190401
  10. ILARIS [Suspect]
     Active Substance: CANAKINUMAB
     Dosage: 240 MG
     Route: 058
     Dates: start: 20190423
  11. ILARIS [Suspect]
     Active Substance: CANAKINUMAB
     Dosage: 240 MG
     Route: 058
     Dates: start: 20190520
  12. ILARIS [Suspect]
     Active Substance: CANAKINUMAB
     Dosage: 240 MG
     Route: 058
     Dates: start: 20190625
  13. ILARIS [Suspect]
     Active Substance: CANAKINUMAB
     Dosage: 255 MG
     Route: 058
     Dates: start: 20190724
  14. ILARIS [Suspect]
     Active Substance: CANAKINUMAB
     Dosage: 240 MG
     Route: 058
     Dates: start: 20190813
  15. ILARIS [Suspect]
     Active Substance: CANAKINUMAB
     Dosage: 270 MG
     Route: 058
     Dates: start: 20190906
  16. ILARIS [Suspect]
     Active Substance: CANAKINUMAB
     Dosage: 240 MG
     Route: 058
     Dates: start: 20191001
  17. ILARIS [Suspect]
     Active Substance: CANAKINUMAB
     Dosage: 270 MG
     Route: 058
     Dates: start: 20191107
  18. ILARIS [Suspect]
     Active Substance: CANAKINUMAB
     Dosage: 270 MG
     Route: 058
     Dates: start: 20191206
  19. ILARIS [Suspect]
     Active Substance: CANAKINUMAB
     Dosage: 270 MG
     Route: 058
     Dates: start: 20200109
  20. ILARIS [Suspect]
     Active Substance: CANAKINUMAB
     Dosage: 270 MG
     Route: 058
     Dates: start: 20200130
  21. ILARIS [Suspect]
     Active Substance: CANAKINUMAB
     Dosage: 270 MG
     Route: 058
     Dates: start: 20200227
  22. ILARIS [Suspect]
     Active Substance: CANAKINUMAB
     Dosage: 300 MG
     Route: 058
     Dates: start: 20200326
  23. ILARIS [Suspect]
     Active Substance: CANAKINUMAB
     Dosage: 240 MG
     Route: 058
     Dates: start: 20200421
  24. ILARIS [Suspect]
     Active Substance: CANAKINUMAB
     Dosage: 300 MG
     Route: 058
     Dates: start: 20200521
  25. ILARIS [Suspect]
     Active Substance: CANAKINUMAB
     Dosage: 240 MG
     Route: 058
     Dates: start: 20200616
  26. ILARIS [Suspect]
     Active Substance: CANAKINUMAB
     Dosage: 300 MG
     Route: 058
     Dates: start: 20200717
  27. ILARIS [Suspect]
     Active Substance: CANAKINUMAB
     Dosage: 300 MG
     Route: 058
     Dates: start: 20200813
  28. PREDNISOLONE [Concomitant]
     Active Substance: PREDNISOLONE
     Indication: Still^s disease
     Dosage: 20 MG
     Route: 048
     Dates: start: 200703, end: 20200129
  29. PREDNISOLONE [Concomitant]
     Active Substance: PREDNISOLONE
     Dosage: 20 MG
     Route: 048
     Dates: start: 20200130, end: 20200812
  30. PREDNISOLONE [Concomitant]
     Active Substance: PREDNISOLONE
     Dosage: 18.5 MG
     Route: 048
     Dates: start: 20200813
  31. SULFAMETHOXAZOLE\TRIMETHOPRIM [Concomitant]
     Active Substance: SULFAMETHOXAZOLE\TRIMETHOPRIM
     Indication: Product used for unknown indication
     Dosage: 1 DF, UNK
     Route: 048
     Dates: start: 20171124, end: 20200709
  32. SULFAMETHOXAZOLE\TRIMETHOPRIM [Concomitant]
     Active Substance: SULFAMETHOXAZOLE\TRIMETHOPRIM
     Dosage: 1 DF (TABLET/DAY, 3 DAYS A WEEK)
     Route: 065
     Dates: start: 20201105
  33. FAMOTIDINE [Concomitant]
     Active Substance: FAMOTIDINE
     Indication: Product used for unknown indication
     Dosage: 20 MG, UNK
     Route: 048
     Dates: start: 20140529
  34. PROGRAF [Concomitant]
     Active Substance: TACROLIMUS
     Indication: Still^s disease
     Dosage: 4 MG, UNK
     Route: 065
     Dates: start: 20160215
  35. LOXOPROFEN SODIUM [Concomitant]
     Active Substance: LOXOPROFEN SODIUM
     Indication: Still^s disease
     Dosage: 100 MG, UNK
     Route: 003
     Dates: start: 20180119
  36. AZULFIDINE [Concomitant]
     Active Substance: SULFASALAZINE
     Indication: Still^s disease
     Dosage: 1000 MG, UNK
     Route: 048
     Dates: start: 20181113, end: 20190116
  37. RELENZA [Concomitant]
     Active Substance: ZANAMIVIR
     Indication: Prophylaxis
     Dosage: 10 MG, UNK
     Route: 065
     Dates: start: 20190225, end: 20190315
  38. DENOSUMAB [Concomitant]
     Active Substance: DENOSUMAB
     Indication: Product used for unknown indication
     Dosage: 60 MG, UNK
     Route: 058
     Dates: start: 20180214, end: 20200717
  39. EFINACONAZOLE [Concomitant]
     Active Substance: EFINACONAZOLE
     Indication: Product used for unknown indication
     Dosage: 0.5 ML
     Route: 065
     Dates: start: 20191105, end: 20191121
  40. METOCLOPRAMIDE [Concomitant]
     Active Substance: METOCLOPRAMIDE
     Indication: Product used for unknown indication
     Dosage: 5 MG PER ADMINISTRATION (WHEN FEELING QUEASY)
     Route: 048
     Dates: start: 20191108, end: 20191110
  41. METOCLOPRAMIDE [Concomitant]
     Active Substance: METOCLOPRAMIDE
     Dosage: 5 MG PER ADMINISTRATION (WHEN FEELING QUEASY), PRN
     Route: 048
     Dates: start: 20200326, end: 20200717

REACTIONS (26)
  - Anogenital warts [Recovering/Resolving]
  - Haemophagocytic lymphohistiocytosis [Recovered/Resolved]
  - Purpura [Unknown]
  - Haemophagocytic lymphohistiocytosis [Recovered/Resolved]
  - Haemorrhage [Recovering/Resolving]
  - Platelet count decreased [Recovered/Resolved]
  - Concomitant disease aggravated [Recovered/Resolved]
  - Lymphocyte count decreased [Recovered/Resolved]
  - Hypogammaglobulinaemia [Recovered/Resolved]
  - Concomitant disease aggravated [Recovered/Resolved]
  - Still^s disease [Recovered/Resolved]
  - Rash [Unknown]
  - Disease progression [Recovered/Resolved]
  - White blood cell count decreased [Recovered/Resolved]
  - Infection [Unknown]
  - Iron deficiency anaemia [Recovering/Resolving]
  - Synovial cyst [Not Recovered/Not Resolved]
  - Asteatosis [Not Recovered/Not Resolved]
  - Eczema [Not Recovered/Not Resolved]
  - Bronchitis [Recovered/Resolved]
  - Bronchitis [Recovering/Resolving]
  - Gastroenteritis [Recovered/Resolved]
  - Diarrhoea [Recovered/Resolved]
  - Diarrhoea [Recovered/Resolved]
  - Hypofibrinogenaemia [Recovered/Resolved]
  - Anaemia [Recovered/Resolved]

NARRATIVE: CASE EVENT DATE: 20181113
